FAERS Safety Report 8871348 (Version 1)
Quarter: 2012Q4

REPORT INFORMATION
  Report Type: 
  Country: US (occurrence: US)
  Receive Date: 20121029
  Receipt Date: 20121029
  Transmission Date: 20130627
  Serious: No
  Sender: FDA-Public Use
  Company Number: US-MYLANLABS-2012S1020109

PATIENT
  Sex: Female

DRUGS (2)
  1. CLONIDINE [Suspect]
     Indication: BLOOD PRESSURE INCREASED
     Dosage: Change weekly
     Route: 062
     Dates: start: 201208
  2. UNSPECIFIED INGREDIENT [Concomitant]
     Indication: BLOOD CHOLESTEROL INCREASED

REACTIONS (1)
  - Application site erosion [Recovered/Resolved]
